FAERS Safety Report 8118281-X (Version None)
Quarter: 2012Q1

REPORT INFORMATION
  Report Type: 
  Country: None (occurrence: None)
  Receive Date: 20120207
  Receipt Date: 20120202
  Transmission Date: 20120608
  Serious: Yes (Death)
  Sender: FDA-Public Use
  Company Number: RU-ASTELLAS-2012EU000814

PATIENT
  Sex: Male
  Weight: 65 kg

DRUGS (2)
  1. MYFORTIC [Concomitant]
     Dosage: 720 MG, UNKNOWN/D
     Route: 065
  2. PROGRAF [Suspect]
     Dosage: 6 MG, UNKNOWN/D
     Route: 065

REACTIONS (2)
  - NEPHROGENIC ANAEMIA [None]
  - GASTROINTESTINAL HAEMORRHAGE [None]
